FAERS Safety Report 6049090-3 (Version None)
Quarter: 2009Q1

REPORT INFORMATION
  Report Type: 
  Country: None (occurrence: None)
  Receive Date: 20090123
  Receipt Date: 20090114
  Transmission Date: 20090719
  Serious: Yes (Death)
  Sender: FDA-Public Use
  Company Number: BE-ABBOTT-07P-013-0369036-04

PATIENT
  Sex: Female

DRUGS (17)
  1. HUMIRA [Suspect]
     Indication: CROHN'S DISEASE
     Route: 058
     Dates: start: 20050201, end: 20070410
  2. MEDROL [Concomitant]
     Indication: CHRONIC OBSTRUCTIVE PULMONARY DISEASE
     Dates: start: 20070116, end: 20070215
  3. OXYGEN [Concomitant]
     Indication: CHRONIC OBSTRUCTIVE PULMONARY DISEASE
     Dates: start: 20070116
  4. COVERSYL [Concomitant]
     Indication: HYPERTENSION
     Dates: start: 20040301, end: 20050323
  5. COVERSYL [Concomitant]
     Dates: start: 20060324
  6. FURSDENTINE [Concomitant]
     Indication: PROPHYLAXIS
     Dates: start: 20050627, end: 20050808
  7. FURSDENTINE [Concomitant]
     Indication: CYSTITIS
  8. AXIMUM TONICA [Concomitant]
     Indication: MINERAL SUPPLEMENTATION
     Dates: start: 20050627, end: 20050808
  9. EJUDEX [Concomitant]
     Indication: NEOPLASM SKIN
     Dates: start: 20051128, end: 20051201
  10. FUCIDIN-HYDROCORTISON [Concomitant]
     Indication: NEOPLASM SKIN
     Dates: start: 20051201
  11. TILDIEM RETARD [Concomitant]
     Indication: HYPERTENSION
     Dates: start: 20041222
  12. CONVRAMOL [Concomitant]
     Indication: PAIN
     Dates: start: 20041113
  13. FLIXONASE AQUA [Concomitant]
     Indication: CHRONIC OBSTRUCTIVE PULMONARY DISEASE
     Dates: start: 20041222
  14. SPIRIVA [Concomitant]
     Indication: CHRONIC OBSTRUCTIVE PULMONARY DISEASE
     Dates: start: 20051101
  15. FOSAMAX [Concomitant]
     Indication: OSTEOPOROSIS
     Dates: start: 20030601
  16. TRAMADOL HCL [Concomitant]
     Indication: PAIN
  17. FORADIL [Concomitant]
     Indication: CHRONIC OBSTRUCTIVE PULMONARY DISEASE
     Dates: start: 20020301

REACTIONS (1)
  - PANCYTOPENIA [None]
